FAERS Safety Report 4606706-3 (Version None)
Quarter: 2005Q1

REPORT INFORMATION
  Report Type: 
  Country: None (occurrence: None)
  Receive Date: 20050311
  Receipt Date: 20050225
  Transmission Date: 20050727
  Serious: Yes (Hospitalization)
  Sender: FDA-Public Use
  Company Number: 2005037274

PATIENT
  Age: 68 Year
  Sex: Female
  Weight: 90.7194 kg

DRUGS (9)
  1. SURFAK (DOCUSATE CALCIUM) [Suspect]
     Indication: IRRITABLE BOWEL SYNDROME
     Dosage: 1 IN THE MORNING, 1 IN THE EVENING, ORAL
     Route: 048
     Dates: start: 19970101
  2. VALSARTAN [Concomitant]
  3. METOPROLOL SUCCINAGE (METOPROLOL SUCCINATE) [Concomitant]
  4. VERAPAMIL [Concomitant]
  5. FUROSEMIDE [Concomitant]
  6. WARFARIN SODIUM [Concomitant]
  7. UBIDECARENONE (UBIDECARENONE) [Concomitant]
  8. POTASSIUM ACETATE [Concomitant]
  9. TOCOPHEROL (TOCOPHEROL) [Concomitant]

REACTIONS (1)
  - RESPIRATORY DISORDER [None]
